FAERS Safety Report 5558120-4 (Version None)
Quarter: 2007Q4

REPORT INFORMATION
  Report Type: 
  Country: None (occurrence: None)
  Receive Date: 20071214
  Receipt Date: 20071122
  Transmission Date: 20080405
  Serious: Yes (Death, Hospitalization)
  Sender: FDA-Public Use
  Company Number: UA-BAYER-UA-2007-041220

PATIENT
  Age: 68 Year
  Sex: Male

DRUGS (9)
  1. MABCAMPATH [Suspect]
     Indication: B-CELL SMALL LYMPHOCYTIC LYMPHOMA
     Route: 042
     Dates: start: 20070504, end: 20071106
  2. FLUDARABINE PHOSPHATE [Suspect]
     Indication: B-CELL SMALL LYMPHOCYTIC LYMPHOMA
     Route: 042
     Dates: start: 20070507, end: 20071106
  3. BISEPTOL [Concomitant]
     Indication: INFECTION PROPHYLAXIS
     Route: 048
     Dates: start: 20070504
  4. ACYCLOVIR [Concomitant]
     Indication: PROPHYLAXIS
     Route: 048
     Dates: start: 20070504
  5. OMEPRAZOLE [Concomitant]
     Indication: EROSIVE DUODENITIS
     Route: 048
     Dates: start: 20071108, end: 20071201
  6. HILAC-FORTE [Concomitant]
     Indication: DIARRHOEA
     Route: 048
     Dates: start: 20071124, end: 20071201
  7. FERROUS SULFATE TAB [Concomitant]
     Indication: ANAEMIA
     Route: 048
     Dates: start: 20071124, end: 20071201
  8. EPOETIN ALFA [Concomitant]
     Indication: ANAEMIA
     Route: 058
     Dates: start: 20071124, end: 20071201
  9. LOPERAMIDE HCL [Concomitant]
     Indication: DIARRHOEA
     Route: 048
     Dates: start: 20071124, end: 20071201

REACTIONS (4)
  - DEATH [None]
  - FEBRILE NEUTROPENIA [None]
  - HEPATITIS C ANTIBODY POSITIVE [None]
  - JAUNDICE [None]
